FAERS Safety Report 21738880 (Version 2)
Quarter: 2022Q4

REPORT INFORMATION
  Report Type: Spontaneous
  Country: DE (occurrence: DE)
  Receive Date: 20221216
  Receipt Date: 20221220
  Transmission Date: 20230112
  Serious: Yes (Other)
  Sender: FDA-Public Use
  Company Number: DE-ORGANON-O2212DEU001093

PATIENT
  Age: 9 Year
  Sex: Male

DRUGS (1)
  1. SINGULAIR [Suspect]
     Active Substance: MONTELUKAST SODIUM
     Indication: Asthma
     Dosage: 1 PILL
     Route: 048

REACTIONS (4)
  - Fall [Recovered/Resolved]
  - Movement disorder [Recovered/Resolved]
  - Adverse event [Recovered/Resolved]
  - Hypoaesthesia [Recovered/Resolved]
